FAERS Safety Report 8050624-8 (Version None)
Quarter: 2012Q1

REPORT INFORMATION
  Report Type: 
  Country: None (occurrence: None)
  Receive Date: 20120117
  Receipt Date: 20120117
  Transmission Date: 20120608
  Serious: Yes (Other)
  Sender: FDA-Public Use
  Company Number: None

PATIENT
  Age: 54 Year
  Sex: Male
  Weight: 66.224 kg

DRUGS (1)
  1. VENLAFAXINE HCL [Suspect]
     Indication: POST-TRAUMATIC STRESS DISORDER
     Dosage: 37.5MG
     Route: 048
     Dates: start: 20110915, end: 20110922

REACTIONS (3)
  - ABNORMAL DREAMS [None]
  - SOMNAMBULISM [None]
  - PRODUCT SUBSTITUTION ISSUE [None]
